FAERS Safety Report 6730238-X (Version None)
Quarter: 2010Q2

REPORT INFORMATION
  Report Type: 
  Country: None (occurrence: None)
  Receive Date: 20100512
  Receipt Date: 20100316
  Transmission Date: 20101027
  Serious: No
  Sender: FDA-Public Use
  Company Number: 1000012515

PATIENT
  Age: 58 Year
  Sex: Male

DRUGS (9)
  1. SAVELLA [Suspect]
     Indication: FIBROMYALGIA
     Dosage: 12.5 MG (12.5 MG, 1 IN 1 D), ORAL ; 25 MG (12.5 MG, 2 IN 1 D), ORAL ;  50 MG (25 MG, 2 IN 1 D), ORAL
     Route: 048
     Dates: start: 20091001, end: 20091001
  2. SAVELLA [Suspect]
     Indication: FIBROMYALGIA
     Dosage: 12.5 MG (12.5 MG, 1 IN 1 D), ORAL ; 25 MG (12.5 MG, 2 IN 1 D), ORAL ;  50 MG (25 MG, 2 IN 1 D), ORAL
     Route: 048
     Dates: start: 20091001, end: 20091001
  3. SAVELLA [Suspect]
     Indication: FIBROMYALGIA
     Dosage: 12.5 MG (12.5 MG, 1 IN 1 D), ORAL ; 25 MG (12.5 MG, 2 IN 1 D), ORAL ;  50 MG (25 MG, 2 IN 1 D), ORAL
     Route: 048
     Dates: start: 20091001, end: 20091001
  4. SAVELLA [Suspect]
     Indication: FIBROMYALGIA
     Dosage: SEE IMAGE
     Route: 048
     Dates: start: 20100201, end: 20100201
  5. SAVELLA [Suspect]
     Indication: FIBROMYALGIA
     Dosage: SEE IMAGE
     Route: 048
     Dates: start: 20100201, end: 20100201
  6. SAVELLA [Suspect]
     Indication: FIBROMYALGIA
     Dosage: SEE IMAGE
     Route: 048
     Dates: start: 20100201, end: 20100201
  7. SAVELLA [Suspect]
     Indication: FIBROMYALGIA
     Dosage: SEE IMAGE
     Route: 048
     Dates: start: 20100301
  8. TOPROL-XL [Concomitant]
  9. PROTONIX [Concomitant]

REACTIONS (5)
  - DYSURIA [None]
  - FAECES DISCOLOURED [None]
  - NAUSEA [None]
  - TESTICULAR PAIN [None]
  - VOMITING [None]
